FAERS Safety Report 16988297 (Version 4)
Quarter: 2020Q2

REPORT INFORMATION
  Report Type: Report from Study
  Country: CA (occurrence: CA)
  Receive Date: 20191104
  Receipt Date: 20200521
  Transmission Date: 20200713
  Serious: Yes (Other)
  Sender: FDA-Public Use
  Company Number: CA-GLAXOSMITHKLINE-CA2019AMR199237

PATIENT
  Sex: Male

DRUGS (2)
  1. MEPOLIZUMAB [Suspect]
     Active Substance: MEPOLIZUMAB
     Indication: ASTHMA
     Dosage: 100 MG, Z (MONTHLY)
     Route: 042
     Dates: start: 20180607
  2. MEPOLIZUMAB [Suspect]
     Active Substance: MEPOLIZUMAB
     Dosage: 100 MG, Z (MONTHLY)
     Route: 042

REACTIONS (10)
  - Sleep disorder due to a general medical condition [Unknown]
  - Asthma [Recovered/Resolved]
  - Pneumonia [Unknown]
  - Wheezing [Recovered/Resolved]
  - Chronic obstructive pulmonary disease [Unknown]
  - Bronchitis [Unknown]
  - Sputum discoloured [Unknown]
  - Dyspnoea [Recovering/Resolving]
  - Productive cough [Unknown]
  - Loss of personal independence in daily activities [Recovering/Resolving]
